FAERS Safety Report 8768173 (Version 1)
Quarter: 2012Q4

REPORT INFORMATION
  Report Type: 
  Country: US (occurrence: US)
  Receive Date: 20120905
  Receipt Date: 20120905
  Transmission Date: 20130627
  Serious: Yes (Death)
  Sender: FDA-Public Use
  Company Number: US-GLAXOSMITHKLINE-A0992025A

PATIENT
  Age: 60 Year
  Sex: Male

DRUGS (2)
  1. VOTRIENT [Suspect]
     Indication: RENAL CANCER
     Dosage: 800MG In the morning
     Route: 048
     Dates: start: 20120403, end: 201208
  2. NO CONCURRENT MEDICATIONS [Concomitant]

REACTIONS (1)
  - Death [Fatal]
